FAERS Safety Report 8211546-2 (Version None)
Quarter: 2012Q1

REPORT INFORMATION
  Report Type: 
  Country: None (occurrence: None)
  Receive Date: 20120315
  Receipt Date: 20120310
  Transmission Date: 20120608
  Serious: Yes (Death, Other)
  Sender: FDA-Public Use
  Company Number: US-ASTELLAS-2012US001583

PATIENT
  Sex: Male

DRUGS (1)
  1. PROGRAF [Suspect]
     Indication: RENAL TRANSPLANT
     Dosage: 1 MG, BID
     Route: 048
     Dates: start: 20051219, end: 20110715

REACTIONS (4)
  - DEMENTIA [None]
  - CORONARY ARTERY DISEASE [None]
  - RENAL FAILURE CHRONIC [None]
  - DIABETES MELLITUS [None]
